FAERS Safety Report 5238496-8 (Version None)
Quarter: 2007Q1

REPORT INFORMATION
  Report Type: 
  Country: None (occurrence: None)
  Receive Date: 20070215
  Receipt Date: 20070208
  Transmission Date: 20070707
  Serious: Yes (Hospitalization, Other)
  Sender: FDA-Public Use
  Company Number: HQWYE192109FEB07

PATIENT
  Age: 18 Year
  Sex: Female

DRUGS (1)
  1. PROTONIX [Suspect]
     Dosage: DOSE AND FREQUENCY UNSPECIFIED
     Dates: end: 20070208

REACTIONS (2)
  - HYPERTENSIVE CRISIS [None]
  - WHITE BLOOD CELL COUNT DECREASED [None]
